FAERS Safety Report 21668324 (Version 5)
Quarter: 2023Q2

REPORT INFORMATION
  Report Type: Report from Study
  Country: AU (occurrence: AU)
  Receive Date: 20221201
  Receipt Date: 20230628
  Transmission Date: 20230722
  Serious: Yes (Other)
  Sender: FDA-Public Use
  Company Number: AU-002147023-NVSC2022AU278742

PATIENT
  Age: 53 Year
  Sex: Female

DRUGS (3)
  1. KESIMPTA [Suspect]
     Active Substance: OFATUMUMAB
     Indication: Relapsing-remitting multiple sclerosis
     Dosage: 20 MG, QMO
     Route: 058
     Dates: start: 20221123
  2. KESIMPTA [Suspect]
     Active Substance: OFATUMUMAB
     Dosage: 20 MG, QMO
     Route: 058
     Dates: start: 20221130
  3. KESIMPTA [Suspect]
     Active Substance: OFATUMUMAB
     Dosage: UNK
     Route: 058

REACTIONS (28)
  - Meningioma [Unknown]
  - Multiple sclerosis relapse [Unknown]
  - Hypoaesthesia [Not Recovered/Not Resolved]
  - Muscle spasms [Unknown]
  - Influenza like illness [Unknown]
  - Varicose vein [Unknown]
  - Skin exfoliation [Recovered/Resolved]
  - Eczema [Recovered/Resolved]
  - Psoriasis [Recovered/Resolved]
  - Herpes virus infection [Unknown]
  - Malaise [Not Recovered/Not Resolved]
  - Oral herpes [Not Recovered/Not Resolved]
  - Pyrexia [Unknown]
  - Arthralgia [Recovered/Resolved]
  - Movement disorder [Recovered/Resolved]
  - Skin discolouration [Unknown]
  - Pain in extremity [Recovering/Resolving]
  - Ear lobe infection [Recovered/Resolved]
  - Influenza [Unknown]
  - Nasopharyngitis [Unknown]
  - Sinusitis [Not Recovered/Not Resolved]
  - Sinonasal obstruction [Unknown]
  - Limb discomfort [Unknown]
  - Head discomfort [Unknown]
  - Skin lesion [Unknown]
  - Injection site bruising [Unknown]
  - Accidental exposure to product [Unknown]
  - Incorrect dose administered [Unknown]

NARRATIVE: CASE EVENT DATE: 20221101
